FAERS Safety Report 9735488 (Version 2)
Quarter: 2015Q3

REPORT INFORMATION
  Report Type: Spontaneous
  Country: US (occurrence: US)
  Receive Date: 20131206
  Receipt Date: 20150804
  Transmission Date: 20151125
  Serious: No
  Sender: FDA-Public Use
  Company Number: US-GILEAD-2009-0023357

PATIENT
  Age: 51 Year
  Sex: Male
  Weight: 79.38 kg

DRUGS (14)
  1. ALPRAZOLAM. [Concomitant]
     Active Substance: ALPRAZOLAM
  2. TYLENOL 8 HR [Concomitant]
     Active Substance: ACETAMINOPHEN
  3. DIAZEPAM. [Concomitant]
     Active Substance: DIAZEPAM
  4. ALBUTEROL. [Concomitant]
     Active Substance: ALBUTEROL
  5. BACTRIM DS [Concomitant]
     Active Substance: SULFAMETHOXAZOLE\TRIMETHOPRIM
  6. CELEXA [Concomitant]
     Active Substance: CITALOPRAM HYDROBROMIDE
  7. REVATIO [Concomitant]
     Active Substance: SILDENAFIL CITRATE
  8. ENBREL [Concomitant]
     Active Substance: ETANERCEPT
  9. PREDNISOLONE. [Concomitant]
     Active Substance: PREDNISOLONE
  10. LETAIRIS [Suspect]
     Active Substance: AMBRISENTAN
     Indication: PULMONARY ARTERIAL HYPERTENSION
     Route: 048
     Dates: start: 20090608
  11. XOPENEX HFA [Concomitant]
     Active Substance: LEVALBUTEROL TARTRATE
  12. LISINOPRIL. [Concomitant]
     Active Substance: LISINOPRIL
  13. AZITHROMYCIN [Concomitant]
     Active Substance: AZITHROMYCIN ANHYDROUS
  14. NIFEDIPINE ER [Concomitant]
     Active Substance: NIFEDIPINE

REACTIONS (1)
  - Neuralgia [Recovering/Resolving]
